FAERS Safety Report 8234497-6 (Version None)
Quarter: 2012Q1

REPORT INFORMATION
  Report Type: 
  Country: None (occurrence: None)
  Receive Date: 20120321
  Receipt Date: 20120307
  Transmission Date: 20120608
  Serious: Yes (Death, Hospitalization, Other)
  Sender: FDA-Public Use
  Company Number: 2009AL002226

PATIENT
  Age: 95 Year
  Sex: Female
  Weight: 60.782 kg

DRUGS (30)
  1. FUROSEMIDE [Concomitant]
  2. QUININE SULFATE [Concomitant]
  3. PERCOCET [Concomitant]
  4. DOCUSATE SODIUM [Concomitant]
  5. FENTANYL [Concomitant]
  6. CALCIUM WITH VITAMIN D [Concomitant]
  7. TYLENOL [Concomitant]
  8. AMITRIPTYLINE HCL [Concomitant]
  9. COREG [Concomitant]
  10. VITRON C [Concomitant]
  11. LIDODERM [Concomitant]
  12. METOLAZONE [Concomitant]
  13. MULTI-VITAMINS [Concomitant]
  14. BOOST [Concomitant]
  15. COREG [Concomitant]
  16. OXYCODONE HCL [Concomitant]
  17. LYRICA [Concomitant]
  18. COLACE [Concomitant]
  19. FERROUS SULFATE TAB [Concomitant]
  20. TYLENOL [Concomitant]
  21. LEVAQUIN [Concomitant]
  22. FUROSEMIDE [Concomitant]
  23. ATIVAN [Concomitant]
  24. METOLAZONE [Concomitant]
  25. LUMIGAN [Concomitant]
  26. DIGOXIN [Suspect]
     Indication: HEART RATE INCREASED
     Dosage: 0.125 MG;QD;PO
     Route: 048
     Dates: start: 20050125, end: 20070822
  27. LISINOPRIL [Concomitant]
  28. COUMADIN [Concomitant]
  29. QUALAQUIN [Concomitant]
  30. LYRICA [Concomitant]

REACTIONS (82)
  - DIARRHOEA [None]
  - DECREASED APPETITE [None]
  - OEDEMA [None]
  - FALL [None]
  - IRON DEFICIENCY ANAEMIA [None]
  - FLUID INTAKE REDUCED [None]
  - LETHARGY [None]
  - BRADYCARDIA [None]
  - CARDIAC MURMUR [None]
  - ATELECTASIS [None]
  - RALES [None]
  - LEFT ATRIAL DILATATION [None]
  - DILATATION VENTRICULAR [None]
  - LEFT VENTRICULAR DYSFUNCTION [None]
  - AORTIC VALVE INCOMPETENCE [None]
  - JUGULAR VEIN DISTENSION [None]
  - RESPIRATORY DISTRESS [None]
  - EYES SUNKEN [None]
  - MULTIPLE INJURIES [None]
  - EMOTIONAL DISORDER [None]
  - ASTHENIA [None]
  - HERPES ZOSTER [None]
  - CARDIAC FAILURE CONGESTIVE [None]
  - DYSPNOEA [None]
  - ACUTE PRERENAL FAILURE [None]
  - BASAL CELL CARCINOMA [None]
  - SOMNOLENCE [None]
  - AORTIC CALCIFICATION [None]
  - TRICUSPID VALVE INCOMPETENCE [None]
  - BUNDLE BRANCH BLOCK RIGHT [None]
  - ATRIOVENTRICULAR BLOCK [None]
  - BLOOD CHLORIDE DECREASED [None]
  - MENTAL DISORDER [None]
  - PAIN [None]
  - HALLUCINATION [None]
  - INTERNATIONAL NORMALISED RATIO INCREASED [None]
  - MENTAL STATUS CHANGES [None]
  - FLANK PAIN [None]
  - WEIGHT DECREASED [None]
  - SKIN ULCER [None]
  - PLATELET COUNT DECREASED [None]
  - ATRIAL SEPTAL DEFECT [None]
  - KYPHOSIS [None]
  - BUNDLE BRANCH BLOCK LEFT [None]
  - BLOOD CHLORIDE INCREASED [None]
  - POST HERPETIC NEURALGIA [None]
  - PRODUCTIVE COUGH [None]
  - CHILLS [None]
  - SICK SINUS SYNDROME [None]
  - PLEURAL EFFUSION [None]
  - BLOOD PRESSURE SYSTOLIC INCREASED [None]
  - CONFUSIONAL STATE [None]
  - HUMERUS FRACTURE [None]
  - PNEUMONIA [None]
  - ECCHYMOSIS [None]
  - MITRAL VALVE INCOMPETENCE [None]
  - ASCITES [None]
  - ATRIAL FIBRILLATION [None]
  - HYPERKALAEMIA [None]
  - DEHYDRATION [None]
  - ATRIOVENTRICULAR BLOCK COMPLETE [None]
  - ELECTROCARDIOGRAM ST-T CHANGE [None]
  - BREATH SOUNDS ABNORMAL [None]
  - CACHEXIA [None]
  - PERICARDIAL EFFUSION [None]
  - BLOOD BICARBONATE INCREASED [None]
  - TOXICITY TO VARIOUS AGENTS [None]
  - ECONOMIC PROBLEM [None]
  - MUSCLE SPASMS [None]
  - APHAGIA [None]
  - JOINT SWELLING [None]
  - LUNG INFILTRATION [None]
  - GAIT DISTURBANCE [None]
  - MUSCLE ATROPHY [None]
  - APATHY [None]
  - ARRHYTHMIA [None]
  - BACK PAIN [None]
  - OEDEMA PERIPHERAL [None]
  - URINARY TRACT INFECTION [None]
  - AORTIC STENOSIS [None]
  - PULMONARY VALVE INCOMPETENCE [None]
  - VITAMIN B12 INCREASED [None]
